FAERS Safety Report 14296615 (Version 2)
Quarter: 2018Q2

REPORT INFORMATION
  Report Type: Report from Study
  Country: CA (occurrence: CA)
  Receive Date: 20171218
  Receipt Date: 20180402
  Transmission Date: 20180711
  Serious: Yes (Other)
  Sender: FDA-Public Use
  Company Number: CA-JNJFOC-20171220182

PATIENT
  Age: 15 Year
  Sex: Female
  Weight: 52 kg

DRUGS (2)
  1. REMICADE [Suspect]
     Active Substance: INFLIXIMAB
     Indication: CROHN^S DISEASE
     Dosage: STRENGTH = 100 MG
     Route: 042
     Dates: start: 20161216
  2. REMICADE [Suspect]
     Active Substance: INFLIXIMAB
     Indication: EOSINOPHILIC OESOPHAGITIS
     Dosage: STRENGTH = 100 MG
     Route: 042
     Dates: start: 20161216

REACTIONS (7)
  - Infectious mononucleosis [Recovering/Resolving]
  - Abdominal pain upper [Recovering/Resolving]
  - Anaemia [Recovered/Resolved]
  - Feeling hot [Recovering/Resolving]
  - Pneumonia [Unknown]
  - Infusion related reaction [Recovering/Resolving]
  - Weight decreased [Unknown]

NARRATIVE: CASE EVENT DATE: 201712
